FAERS Safety Report 9951338 (Version 3)
Quarter: 2014Q2

REPORT INFORMATION
  Report Type: Spontaneous
  Country: DE (occurrence: DE)
  Receive Date: 20140304
  Receipt Date: 20140410
  Transmission Date: 20141212
  Serious: Yes (Hospitalization)
  Sender: FDA-Public Use
  Company Number: ALCN2014DE001459

PATIENT
  Age: 73 Year
  Sex: Male
  Weight: 73 kg

DRUGS (8)
  1. AZOPT [Suspect]
     Indication: GLAUCOMA
     Dosage: 1 DF, BID
     Route: 047
     Dates: start: 201304, end: 201401
  2. NEBIVOLOL [Concomitant]
     Indication: HYPERTENSION
     Dosage: 0.5 DF, QD
     Dates: start: 2005
  3. NEBIVOLOL [Concomitant]
     Dosage: 0.25 UNK, QD
     Dates: start: 2005
  4. CRESTOR [Concomitant]
     Indication: HYPERCHOLESTEROLAEMIA
     Dosage: 0.5 DF, QD
     Dates: start: 201310
  5. ASS STADA [Concomitant]
     Dosage: 1 UNK, UNK
  6. XALACOM [Concomitant]
     Indication: GLAUCOMA
     Dosage: 1 DF, QD
     Dates: start: 201201
  7. JODETTEN [Concomitant]
     Indication: THYROID DISORDER
     Dosage: 1 DF, QW
     Dates: start: 2002
  8. CIALIS [Concomitant]
     Indication: BENIGN PROSTATIC HYPERPLASIA
     Dosage: 1 DF, QD
     Dates: start: 201310

REACTIONS (8)
  - Gastrooesophageal reflux disease [Recovering/Resolving]
  - Bowel movement irregularity [Recovering/Resolving]
  - Diarrhoea [Recovered/Resolved]
  - Constipation [Recovered/Resolved]
  - Abdominal pain upper [Recovering/Resolving]
  - Dyspepsia [Recovered/Resolved]
  - Fatigue [Recovered/Resolved]
  - Nervousness [Unknown]
